FAERS Safety Report 23190559 (Version 1)
Quarter: 2023Q4

REPORT INFORMATION
  Report Type: Spontaneous
  Country: US (occurrence: US)
  Receive Date: 20231116
  Receipt Date: 20231116
  Transmission Date: 20240109
  Serious: No
  Sender: FDA-Public Use
  Company Number: US-BRISTOL-MYERS SQUIBB COMPANY-2023-163333

PATIENT
  Age: 68 Year
  Sex: Female

DRUGS (2)
  1. THALOMID [Suspect]
     Active Substance: THALIDOMIDE
     Indication: Myelodysplastic syndrome
     Route: 048
  2. THALOMID [Suspect]
     Active Substance: THALIDOMIDE

REACTIONS (1)
  - Sedation [Unknown]
